FAERS Safety Report 5077820-6 (Version None)
Quarter: 2006Q3

REPORT INFORMATION
  Report Type: 
  Country: None (occurrence: None)
  Receive Date: 20060807
  Receipt Date: 20060726
  Transmission Date: 20061208
  Serious: Yes (Death, Life-Threatening)
  Sender: FDA-Public Use
  Company Number: 2005-12-0673

PATIENT
  Age: 50 Year
  Sex: Male

DRUGS (6)
  1. PEG-INTRON [Suspect]
     Indication: HEPATITIS C
     Dosage: 150 MCG  QWK SUBCUTANEOUS
     Route: 058
     Dates: start: 20050104, end: 20050703
  2. RIBAVIRIN [Suspect]
     Indication: HEPATITIS C
     Dosage: 1200 MG QD ORAL
     Route: 048
     Dates: start: 20050104, end: 20050703
  3. ALPRAZOLAM [Concomitant]
  4. OMEPRAZOLE [Concomitant]
  5. OXYCODONE HYDROCHLORIDE TABLETS [Concomitant]
  6. SERTRALINE HCL TABLETS [Concomitant]

REACTIONS (24)
  - ANOREXIA [None]
  - BRAIN OEDEMA [None]
  - COUGH [None]
  - DEPRESSION [None]
  - DRUG SCREEN POSITIVE [None]
  - DYSPNOEA [None]
  - FATIGUE [None]
  - FOREIGN BODY TRAUMA [None]
  - GIANT CELL EPULIS [None]
  - HAEMATOCRIT DECREASED [None]
  - HAEMOGLOBIN DECREASED [None]
  - HEPATIC STEATOSIS [None]
  - INJECTION SITE HAEMORRHAGE [None]
  - INJECTION SITE REACTION [None]
  - INSOMNIA [None]
  - MYALGIA [None]
  - PARANOIA [None]
  - PLATELET COUNT DECREASED [None]
  - PULMONARY CONGESTION [None]
  - PULMONARY OEDEMA [None]
  - RASH [None]
  - RED BLOOD CELL COUNT DECREASED [None]
  - VISCERAL OEDEMA [None]
  - WHITE BLOOD CELL COUNT DECREASED [None]
